FAERS Safety Report 22061958 (Version 1)
Quarter: 2023Q1

REPORT INFORMATION
  Report Type: Spontaneous
  Country: CN (occurrence: CN)
  Receive Date: 20230304
  Receipt Date: 20230304
  Transmission Date: 20230417
  Serious: Yes (Hospitalization, Other)
  Sender: FDA-Public Use
  Company Number: CN-MSNLABS-2023MSNLIT00313

PATIENT

DRUGS (2)
  1. CAPECITABINE [Suspect]
     Active Substance: CAPECITABINE
     Indication: Invasive ductal breast carcinoma
     Route: 065
     Dates: start: 201907, end: 201910
  2. CISPLATIN [Concomitant]
     Active Substance: CISPLATIN
     Indication: Metastases to lung
     Route: 065

REACTIONS (1)
  - Treatment failure [Unknown]
